FAERS Safety Report 9463316 (Version 2)
Quarter: 2013Q4

REPORT INFORMATION
  Report Type: Spontaneous
  Country: US (occurrence: US)
  Receive Date: 20130819
  Receipt Date: 20131004
  Transmission Date: 20140711
  Serious: Yes (Other)
  Sender: FDA-Public Use
  Company Number: US-BIOGENIDEC-2013BI074347

PATIENT
  Age: 43 Year
  Sex: Male

DRUGS (1)
  1. AVONEX [Suspect]
     Indication: MULTIPLE SCLEROSIS
     Route: 030
     Dates: start: 20050215

REACTIONS (5)
  - Pyrexia [Recovered/Resolved]
  - Convulsion [Recovered/Resolved]
  - Musculoskeletal disorder [Not Recovered/Not Resolved]
  - Skin induration [Not Recovered/Not Resolved]
  - Atrophy [Not Recovered/Not Resolved]
